FAERS Safety Report 19769888 (Version 1)
Quarter: 2021Q3

REPORT INFORMATION
  Report Type: Spontaneous
  Country: US (occurrence: US)
  Receive Date: 20210831
  Receipt Date: 20210831
  Transmission Date: 20211014
  Serious: No
  Sender: FDA-Public Use
  Company Number: US-BEH-2021135422

PATIENT
  Sex: Female

DRUGS (7)
  1. HIZENTRA [Suspect]
     Active Substance: HUMAN IMMUNOGLOBULIN G
     Indication: IMMUNODEFICIENCY COMMON VARIABLE
     Dosage: 6 GRAM, QW
     Route: 058
     Dates: start: 202108
  2. GABAPENTIN. [Concomitant]
     Active Substance: GABAPENTIN
     Dosage: UNK
  3. LEVOTHYROXINE SODIUM. [Concomitant]
     Active Substance: LEVOTHYROXINE SODIUM
     Dosage: UNK
  4. PRISTIQ EXTENDED?RELEASE [Concomitant]
     Active Substance: DESVENLAFAXINE SUCCINATE
     Dosage: UNK
  5. ADDERALL [Concomitant]
     Active Substance: AMPHETAMINE ASPARTATE\AMPHETAMINE SULFATE\DEXTROAMPHETAMINE SACCHARATE\DEXTROAMPHETAMINE SULFATE
     Dosage: UNK
  6. KLONOPIN [Concomitant]
     Active Substance: CLONAZEPAM
     Dosage: UNK
  7. REMERON [Concomitant]
     Active Substance: MIRTAZAPINE
     Dosage: UNK

REACTIONS (3)
  - Infusion site swelling [Recovered/Resolved]
  - Infusion site pain [Recovered/Resolved]
  - Infusion site erythema [Recovered/Resolved]
